FAERS Safety Report 22596441 (Version 1)
Quarter: 2023Q2

REPORT INFORMATION
  Report Type: Spontaneous
  Country: FR (occurrence: FR)
  Receive Date: 20230613
  Receipt Date: 20230613
  Transmission Date: 20230722
  Serious: Yes (Hospitalization)
  Sender: FDA-Public Use
  Company Number: None

PATIENT
  Age: 21 Year
  Sex: Female
  Weight: 58.9 kg

DRUGS (2)
  1. LEVOFLOXACIN [Suspect]
     Active Substance: LEVOFLOXACIN
     Indication: Pyelonephritis
     Dosage: 500 MG, QD
     Route: 048
     Dates: start: 20230522, end: 20230524
  2. IBUPROFEN [Suspect]
     Active Substance: IBUPROFEN
     Indication: Pyelonephritis
     Dosage: 2 DOSAGE FORM (TOTAL)
     Route: 048
     Dates: start: 20230521, end: 20230521

REACTIONS (1)
  - Haemolytic anaemia [Recovered/Resolved]

NARRATIVE: CASE EVENT DATE: 20230524
